FAERS Safety Report 7336298-X (Version None)
Quarter: 2011Q1

REPORT INFORMATION
  Report Type: 
  Country: None (occurrence: None)
  Receive Date: 20110307
  Receipt Date: 20110303
  Transmission Date: 20110831
  Serious: Yes (Life-Threatening, Other)
  Sender: FDA-Public Use
  Company Number: FR-PFIZER INC-2010171257

PATIENT
  Age: 39 Year
  Sex: Female
  Weight: 62 kg

DRUGS (3)
  1. CHAMPIX [Suspect]
     Indication: SMOKING CESSATION THERAPY
     Dosage: 1 MG, 2X/DAY
     Dates: start: 20101120
  2. MINULET [Concomitant]
     Indication: CONTRACEPTION
     Dosage: UNK
     Route: 048
  3. CHAMPIX [Suspect]
     Dosage: UNK

REACTIONS (12)
  - OROPHARYNGEAL PAIN [None]
  - ODYNOPHAGIA [None]
  - MALAISE [None]
  - NASAL DRYNESS [None]
  - INSOMNIA [None]
  - BACK PAIN [None]
  - SENSATION OF HEAVINESS [None]
  - NIGHTMARE [None]
  - RASH [None]
  - ACUTE CORONARY SYNDROME [None]
  - UPPER AIRWAY OBSTRUCTION [None]
  - URTICARIA [None]
